FAERS Safety Report 8688382 (Version 4)
Quarter: 2012Q4

REPORT INFORMATION
  Report Type: 
  Country: JP (occurrence: JP)
  Receive Date: 20120727
  Receipt Date: 20121022
  Transmission Date: 20130627
  Serious: Yes (Death, Hospitalization)
  Sender: FDA-Public Use
  Company Number: JP-B.I. PHARMACEUTICALS,INC./RIDGEFIELD-2012-BP-16520NB

PATIENT
  Age: 62 Year
  Sex: Male
  Weight: 110 kg

DRUGS (6)
  1. PRAZAXA [Suspect]
     Indication: ATRIAL FIBRILLATION
     Dosage: 300 mg
     Route: 048
     Dates: start: 20120510
  2. DIOVAN [Concomitant]
     Indication: HYPERTENSION
     Dosage: 160 mg
     Route: 048
  3. CALBLOCK [Concomitant]
     Indication: HYPERTENSION
     Dosage: 16 mg
     Route: 048
  4. ARTIST [Concomitant]
     Indication: HYPERTENSION
     Dosage: 20 mg
     Route: 048
  5. CARDENALIN [Concomitant]
     Indication: HYPERTENSION
     Dosage: 2 mg
     Route: 048
  6. BEPRICOR [Concomitant]
     Indication: ATRIAL FIBRILLATION
     Dosage: 200 mg
     Route: 065

REACTIONS (3)
  - Shock haemorrhagic [Fatal]
  - Procedural haemorrhage [Fatal]
  - Aortic dissection [Unknown]
